FAERS Safety Report 15618366 (Version 1)
Quarter: 2018Q4

REPORT INFORMATION
  Report Type: Report from Study
  Country: DE (occurrence: DE)
  Receive Date: 20181114
  Receipt Date: 20181114
  Transmission Date: 20190205
  Serious: Yes (Other)
  Sender: FDA-Public Use
  Company Number: DE-VALIDUS PHARMACEUTICALS LLC-DE-2018VAL000954

PATIENT
  Age: 79 Year
  Sex: Female
  Weight: 67 kg

DRUGS (24)
  1. ISOSORBIDE MONONITRATE. [Suspect]
     Active Substance: ISOSORBIDE MONONITRATE
     Indication: CORONARY ARTERY DISEASE
     Dosage: 1 DF, QD
     Route: 048
     Dates: start: 20000218, end: 20000224
  2. PHENYTOIN. [Suspect]
     Active Substance: PHENYTOIN
     Dosage: UNK
     Route: 042
     Dates: start: 20000227, end: 20000227
  3. ACETYLSALICYLIC ACID [Suspect]
     Active Substance: ASPIRIN
     Indication: CORONARY ARTERY DISEASE
     Dosage: 100 MG, QD
     Route: 048
     Dates: start: 20000130, end: 20000227
  4. DIAZEPAM. [Suspect]
     Active Substance: DIAZEPAM
     Indication: SEIZURE
     Dosage: 5 MG, QD
     Route: 042
     Dates: start: 20000218, end: 20000225
  5. FUROSEMIDE. [Suspect]
     Active Substance: FUROSEMIDE
     Indication: CORONARY ARTERY DISEASE
     Dosage: UNK
     Route: 048
     Dates: start: 20000218, end: 20000224
  6. RANITIDINE HYDROCHLORIDE. [Suspect]
     Active Substance: RANITIDINE HYDROCHLORIDE
     Indication: GASTRIC ULCER
     Dosage: 300 MG, UNK
     Route: 048
     Dates: start: 20000218, end: 20000224
  7. RANITIDINE HYDROCHLORIDE. [Suspect]
     Active Substance: RANITIDINE HYDROCHLORIDE
     Dosage: UNK UNK, QD
     Route: 048
     Dates: start: 20000225, end: 20000227
  8. ISOSORBIDE DINITRATE. [Suspect]
     Active Substance: ISOSORBIDE DINITRATE
     Indication: CORONARY ARTERY DISEASE
     Dosage: 1 DF, QD
     Route: 048
     Dates: start: 20000130, end: 20000218
  9. PHENYTOIN. [Suspect]
     Active Substance: PHENYTOIN
     Dosage: UNK
     Route: 042
     Dates: start: 20000226, end: 20000226
  10. SULFAMETHOXAZOLE W/TRIMETHOPRIM [Suspect]
     Active Substance: SULFAMETHOXAZOLE\TRIMETHOPRIM
     Indication: CYSTITIS
     Dosage: 2 DF, QD
     Route: 048
     Dates: start: 20000226
  11. COTRIMOXAZOLE [Suspect]
     Active Substance: SULFAMETHOXAZOLE\TRIMETHOPRIM
     Indication: URINARY TRACT INFECTION
     Dosage: 2 DF, QD
     Route: 048
     Dates: start: 20000226, end: 20000227
  12. NORVASC [Concomitant]
     Active Substance: AMLODIPINE BESYLATE
     Indication: PRODUCT USED FOR UNKNOWN INDICATION
     Dosage: UNK
     Dates: start: 20000130, end: 20000227
  13. PHENYTOIN. [Suspect]
     Active Substance: PHENYTOIN
     Dosage: UNK
     Route: 042
     Dates: start: 20000226, end: 20000226
  14. TRAMADOL HYDROCHLORIDE. [Suspect]
     Active Substance: TRAMADOL HYDROCHLORIDE
     Dosage: DOSE UNIT: 20 DROP
     Route: 048
     Dates: start: 20000221, end: 20000221
  15. COTRIMOXAZOLE [Suspect]
     Active Substance: SULFAMETHOXAZOLE\TRIMETHOPRIM
     Indication: CYSTITIS
  16. CLONAZEPAM. [Suspect]
     Active Substance: CLONAZEPAM
     Indication: SEIZURE
     Dosage: 1 MG, QD
     Route: 042
     Dates: start: 20000224, end: 20000224
  17. TRAMADOL HYDROCHLORIDE. [Suspect]
     Active Substance: TRAMADOL HYDROCHLORIDE
     Dosage: DOSE UNIT: 20 DROP
     Route: 048
     Dates: start: 20000223, end: 20000223
  18. FUROSEMIDE. [Suspect]
     Active Substance: FUROSEMIDE
     Indication: OEDEMA
     Dosage: 40 MG, QD
     Route: 048
     Dates: start: 20000225, end: 20000227
  19. CARBAMAZEPINE. [Suspect]
     Active Substance: CARBAMAZEPINE
     Indication: SEIZURE
     Dosage: 600 MG, QD
     Route: 048
     Dates: start: 20000125, end: 20000224
  20. TRAMADOL HYDROCHLORIDE. [Suspect]
     Active Substance: TRAMADOL HYDROCHLORIDE
     Indication: PAIN
     Dosage: DOSE UNIT: 20 DROP EAR EYE NOSE DROP SOLUTION
     Route: 048
     Dates: start: 20000218, end: 20000218
  21. BEN-U-RON [Concomitant]
     Active Substance: ACETAMINOPHEN
     Indication: PRODUCT USED FOR UNKNOWN INDICATION
     Dosage: UNK
     Dates: start: 20000226, end: 20000226
  22. PHENYTOIN. [Suspect]
     Active Substance: PHENYTOIN
     Indication: SEIZURE
     Dosage: UNK
     Route: 042
     Dates: start: 20000225, end: 20000225
  23. AMLODIPINE                         /00972402/ [Suspect]
     Active Substance: AMLODIPINE BESYLATE
     Indication: CORONARY ARTERY DISEASE
     Dosage: 5 MG, QD
     Route: 048
     Dates: start: 20000130, end: 20000220
  24. PHENOBARBITAL. [Suspect]
     Active Substance: PHENOBARBITAL
     Indication: SEIZURE
     Dosage: UNK
     Route: 030
     Dates: start: 20000225, end: 20000227

REACTIONS (9)
  - Rash macular [Recovered/Resolved]
  - Stevens-Johnson syndrome [Recovered/Resolved]
  - Lip erosion [Unknown]
  - Pruritus generalised [Recovered/Resolved]
  - Mucosal erosion [Unknown]
  - Erythema [Unknown]
  - Eyelid oedema [Unknown]
  - Conjunctivitis [Recovered/Resolved]
  - Blister [Recovered/Resolved]

NARRATIVE: CASE EVENT DATE: 20000227
